FAERS Safety Report 7799280-4 (Version None)
Quarter: 2011Q4

REPORT INFORMATION
  Report Type: 
  Country: None (occurrence: None)
  Receive Date: 20111004
  Receipt Date: 20111004
  Transmission Date: 20120403
  Serious: No
  Sender: FDA-Public Use
  Company Number: None

PATIENT
  Sex: Male

DRUGS (1)
  1. HUMALOG [Suspect]
     Indication: DIABETES MELLITUS
     Dosage: USE 50 UNITS VIA PUMP AS DIRECTED
     Dates: start: 20110830

REACTIONS (2)
  - PRODUCT GEL FORMATION [None]
  - BLOOD GLUCOSE INCREASED [None]
